FAERS Safety Report 9664116 (Version 1)
Quarter: 2013Q4

REPORT INFORMATION
  Report Type: Spontaneous
  Country: US (occurrence: US)
  Receive Date: 20131101
  Receipt Date: 20131101
  Transmission Date: 20140711
  Serious: Yes (Life-Threatening, Hospitalization)
  Sender: FDA-Public Use
  Company Number: US-MYLANLABS-2013S1023783

PATIENT
  Age: 3 Decade
  Sex: Female
  Weight: 56.7 kg

DRUGS (2)
  1. RISPERIDONE TABLETS USP [Suspect]
     Indication: BIPOLAR DISORDER
     Route: 048
     Dates: start: 2010, end: 201303
  2. RISPERIDONE TABLETS USP [Suspect]
     Indication: BIPOLAR DISORDER
     Route: 048
     Dates: start: 2010, end: 201303

REACTIONS (5)
  - Suicide attempt [Recovered/Resolved]
  - Suicidal ideation [Recovered/Resolved]
  - Confusional state [Recovered/Resolved]
  - Weight decreased [Recovered/Resolved]
  - Eye pain [Recovered/Resolved]
